FAERS Safety Report 8977534 (Version 1)
Quarter: 2012Q4

REPORT INFORMATION
  Report Type: 
  Country: BR (occurrence: BR)
  Receive Date: 20121219
  Receipt Date: 20121219
  Transmission Date: 20130627
  Serious: Yes (Other)
  Sender: FDA-Public Use
  Company Number: BR-ASTRAZENECA-2012SE92860

PATIENT
  Age: 51 Year
  Sex: Female
  Weight: 62 kg

DRUGS (6)
  1. NEXIUM [Suspect]
     Indication: GASTRITIS
     Route: 048
     Dates: start: 201206, end: 20121207
  2. NEXIUM [Suspect]
     Indication: GASTROOESOPHAGEAL REFLUX DISEASE
     Route: 048
     Dates: start: 201206, end: 20121207
  3. NEXIUM [Suspect]
     Indication: GASTRITIS
     Route: 048
     Dates: start: 201212
  4. NEXIUM [Suspect]
     Indication: GASTROOESOPHAGEAL REFLUX DISEASE
     Route: 048
     Dates: start: 201212
  5. MELOXICAM [Suspect]
     Indication: ARTHRITIS
     Dosage: UNKNOWN DOSE ONCE DAILY
     Route: 030
     Dates: start: 201211, end: 201211
  6. NATIFA PRO [Concomitant]
     Indication: HORMONE REPLACEMENT THERAPY
     Route: 048
     Dates: start: 2008

REACTIONS (3)
  - Arthritis [Recovering/Resolving]
  - Pruritus generalised [Recovered/Resolved]
  - Gastritis [Recovering/Resolving]
